FAERS Safety Report 15482460 (Version 1)
Quarter: 2018Q4

REPORT INFORMATION
  Report Type: Spontaneous
  Country: NL (occurrence: NL)
  Receive Date: 20181010
  Receipt Date: 20181010
  Transmission Date: 20190205
  Serious: Yes (Hospitalization)
  Sender: FDA-Public Use
  Company Number: PHHY2018NL115249

PATIENT
  Age: 23 Year
  Sex: Male

DRUGS (2)
  1. QUETIAPINE. [Suspect]
     Active Substance: QUETIAPINE
     Indication: POST-TRAUMATIC STRESS DISORDER
     Dosage: 1 DF, QD
     Route: 065
  2. QUETIAPINE. [Suspect]
     Active Substance: QUETIAPINE
     Dosage: 20 TO 25 TABLETS OF 300 MG (TOTAL 6000-7500 MG)
     Route: 065

REACTIONS (12)
  - Restlessness [Recovering/Resolving]
  - Disorientation [Recovering/Resolving]
  - Tachycardia [Recovering/Resolving]
  - Disturbance in attention [Recovering/Resolving]
  - Hallucination [Recovering/Resolving]
  - Product use in unapproved indication [Unknown]
  - Somnolence [Recovering/Resolving]
  - Intentional overdose [Recovering/Resolving]
  - Abdominal pain [Recovering/Resolving]
  - Urinary retention [Recovering/Resolving]
  - Toxicity to various agents [Recovering/Resolving]
  - Delirium [Recovered/Resolved]
